FAERS Safety Report 22245134 (Version 1)
Quarter: 2023Q2

REPORT INFORMATION
  Report Type: Spontaneous
  Country: US (occurrence: US)
  Receive Date: 20230424
  Receipt Date: 20230424
  Transmission Date: 20230722
  Serious: No
  Sender: FDA-Public Use
  Company Number: US-Ipsen Biopharmaceuticals, Inc.-2023-08853

PATIENT
  Age: 27 Year
  Sex: Female

DRUGS (2)
  1. DYSPORT [Suspect]
     Active Substance: ABOBOTULINUMTOXINA
     Indication: Skin cosmetic procedure
     Dosage: 40 IN GLABELLA, 30 IN FOREHEAD
     Route: 065
     Dates: start: 20230403, end: 20230403
  2. DYSPORT [Suspect]
     Active Substance: ABOBOTULINUMTOXINA
     Dosage: 40 IN GLABELLA, 30 IN FOREHEAD
     Route: 065
     Dates: start: 202111, end: 202111

REACTIONS (2)
  - Off label use [Unknown]
  - Migraine [Recovered/Resolved]

NARRATIVE: CASE EVENT DATE: 20230407
